FAERS Safety Report 9490596 (Version 3)
Quarter: 2013Q4

REPORT INFORMATION
  Report Type: Spontaneous
  Country: GB (occurrence: None)
  Receive Date: 20130826
  Receipt Date: 20131122
  Transmission Date: 20140711
  Serious: Yes (Other)
  Sender: FDA-Public Use
  Company Number: KAD201308-001049

PATIENT
  Age: 47 Year
  Sex: Female

DRUGS (3)
  1. RIBAVIRIN [Suspect]
     Indication: HEPATITIS C
     Route: 048
     Dates: start: 20120918
  2. PEGINTERFERON ALFA-2B [Suspect]
     Indication: HEPATITIS C
     Route: 058
     Dates: start: 20120918
  3. INCIVO [Suspect]
     Indication: HEPATITIS C
     Dosage: THRICE A DAY
     Route: 048
     Dates: start: 20120918

REACTIONS (6)
  - Depression [None]
  - Insomnia [None]
  - Nausea [None]
  - Rash [None]
  - Rash vesicular [None]
  - Tongue dry [None]
